FAERS Safety Report 19929556 (Version 3)
Quarter: 2022Q1

REPORT INFORMATION
  Report Type: Report from Study
  Country: CO (occurrence: CO)
  Receive Date: 20211007
  Receipt Date: 20220202
  Transmission Date: 20220423
  Serious: Yes (Other)
  Sender: FDA-Public Use
  Company Number: CO-NOVARTISPH-NVSC2021CO129829

PATIENT
  Sex: Female

DRUGS (2)
  1. KISQALI [Suspect]
     Active Substance: RIBOCICLIB
     Indication: Breast cancer metastatic
     Dosage: UNK UNK, QD
     Route: 048
  2. FEMARA [Suspect]
     Active Substance: LETROZOLE
     Indication: Breast cancer
     Dosage: UNK
     Route: 048

REACTIONS (9)
  - Pneumonia [Unknown]
  - Bone pain [Unknown]
  - Pain [Unknown]
  - Malaise [Unknown]
  - Chest pain [Unknown]
  - Pain in extremity [Unknown]
  - Insomnia [Unknown]
  - Crying [Unknown]
  - Back pain [Recovering/Resolving]
